FAERS Safety Report 9166042 (Version 2)
Quarter: 2013Q1

REPORT INFORMATION
  Report Type: Report from Study
  Country: DE (occurrence: DE)
  Receive Date: 20130315
  Receipt Date: 20130321
  Transmission Date: 20140127
  Serious: Yes (Death, Hospitalization)
  Sender: FDA-Public Use
  Company Number: DE-GLAXOSMITHKLINE-Z0018913B

PATIENT
  Age: 80 Year
  Sex: Male

DRUGS (5)
  1. ELTROMBOPAG [Suspect]
     Indication: THROMBOCYTOPENIA
     Route: 048
     Dates: start: 20130213
  2. HUMIRA [Concomitant]
     Indication: ANKYLOSING SPONDYLITIS
     Dosage: 40MG MONTHLY
     Route: 058
     Dates: end: 2013
  3. FINASTERID [Concomitant]
     Indication: BENIGN PROSTATIC HYPERPLASIA
     Dosage: 25MG PER DAY
     Route: 048
     Dates: end: 20130312
  4. FUROSEMID [Concomitant]
     Indication: ATRIAL FIBRILLATION
     Dosage: 120MG PER DAY
     Route: 048
     Dates: start: 201212, end: 20130307
  5. METOPROLOL [Concomitant]
     Indication: MYOCARDIAL INFARCTION
     Dosage: 47.5MG PER DAY
     Route: 048
     Dates: start: 201103, end: 20130312

REACTIONS (2)
  - Cardiac failure [Not Recovered/Not Resolved]
  - Stenotrophomonas infection [Fatal]
